FAERS Safety Report 6556948-5 (Version None)
Quarter: 2010Q1

REPORT INFORMATION
  Report Type: 
  Country: None (occurrence: None)
  Receive Date: 20100126
  Receipt Date: 20100113
  Transmission Date: 20100710
  Serious: Yes (Other)
  Sender: FDA-Public Use
  Company Number: 1000011446

PATIENT
  Age: 48 Year
  Sex: Female

DRUGS (2)
  1. ESCITALOPRAM [Suspect]
     Dosage: 10 MG
  2. ATIVAN [Concomitant]

REACTIONS (2)
  - PARAESTHESIA [None]
  - PSYCHOMOTOR HYPERACTIVITY [None]
